FAERS Safety Report 11430772 (Version 1)
Quarter: 2015Q3

REPORT INFORMATION
  Report Type: Spontaneous
  Country: US (occurrence: US)
  Receive Date: 20150828
  Receipt Date: 20150828
  Transmission Date: 20151125
  Serious: No
  Sender: FDA-Public Use
  Company Number: US-ROCHE-1139576

PATIENT
  Sex: Male

DRUGS (4)
  1. COPEGUS [Suspect]
     Active Substance: RIBAVIRIN
     Dosage: 200/200
     Route: 048
  2. INCIVEK [Suspect]
     Active Substance: TELAPREVIR
     Indication: CHRONIC HEPATITIS C
     Route: 065
     Dates: start: 20120801
  3. PEGASYS [Suspect]
     Active Substance: PEGINTERFERON ALFA-2A
     Indication: CHRONIC HEPATITIS C
     Route: 058
     Dates: start: 20120801
  4. COPEGUS [Suspect]
     Active Substance: RIBAVIRIN
     Indication: CHRONIC HEPATITIS C
     Dosage: DIVIDED DOSES 600/600
     Route: 048
     Dates: start: 20120801

REACTIONS (20)
  - Decreased appetite [Unknown]
  - Dizziness [Unknown]
  - Headache [Unknown]
  - Immunodeficiency [Unknown]
  - Anaemia [Unknown]
  - Blister [Recovering/Resolving]
  - Agitation [Unknown]
  - Memory impairment [Unknown]
  - Fatigue [Unknown]
  - Blood pressure increased [Unknown]
  - Myalgia [Unknown]
  - Chills [Unknown]
  - Diarrhoea [Unknown]
  - Pyrexia [Unknown]
  - Dyspnoea exertional [Unknown]
  - Hypophagia [Unknown]
  - Fall [Unknown]
  - Night sweats [Unknown]
  - Nasopharyngitis [Unknown]
  - Insomnia [Unknown]
